FAERS Safety Report 7668957-3 (Version None)
Quarter: 2011Q3

REPORT INFORMATION
  Report Type: 
  Country: None (occurrence: None)
  Receive Date: 20110808
  Receipt Date: 20110727
  Transmission Date: 20111222
  Serious: Yes (Hospitalization)
  Sender: FDA-Public Use
  Company Number: US-VIIV HEALTHCARE LIMITED-B0660852A

PATIENT
  Age: 51 Year
  Sex: Male
  Weight: 62.3 kg

DRUGS (8)
  1. ASTEPRO [Concomitant]
     Indication: RHINITIS SEASONAL
     Dates: start: 20090515
  2. LEVITRA [Concomitant]
     Indication: ERECTILE DYSFUNCTION
     Dates: start: 20091007
  3. RITONAVIR [Suspect]
     Indication: HIV INFECTION
     Dosage: 100MG PER DAY
     Route: 048
     Dates: start: 20090623
  4. ACYCLOVIR [Concomitant]
     Indication: HERPES VIRUS INFECTION
     Dates: start: 20090423
  5. PROVENTIL [Concomitant]
     Indication: WHEEZING
     Dates: start: 20091007
  6. OPTIVAR [Concomitant]
     Indication: CONJUNCTIVITIS ALLERGIC
     Dates: start: 20100405
  7. MARAVIROC [Suspect]
     Indication: HIV INFECTION
     Dosage: 150MG PER DAY
     Route: 048
     Dates: start: 20090623
  8. DARUNAVIR [Suspect]
     Indication: HIV INFECTION
     Dosage: 800MG PER DAY
     Route: 048
     Dates: start: 20090728

REACTIONS (1)
  - INTESTINAL PERFORATION [None]
